FAERS Safety Report 13776685 (Version 6)
Quarter: 2019Q3

REPORT INFORMATION
  Report Type: Spontaneous
  Country: US (occurrence: US)
  Receive Date: 20170721
  Receipt Date: 20190823
  Transmission Date: 20191004
  Serious: Yes (Hospitalization, Other)
  Sender: FDA-Public Use
  Company Number: US-PFIZER INC-2017314417

PATIENT
  Age: 77 Year
  Sex: Female
  Weight: 75 kg

DRUGS (12)
  1. LEVOTHYROXINE. [Concomitant]
     Active Substance: LEVOTHYROXINE
     Dosage: 112 UG, 1X/DAY (ONE IN THE MORNING)
  2. GABAPENTIN. [Concomitant]
     Active Substance: GABAPENTIN
     Dosage: 400 MG, 3X/DAY
  3. LYRICA [Suspect]
     Active Substance: PREGABALIN
     Indication: SKIN EXFOLIATION
     Dosage: 50 MG, 2X/DAY
     Route: 048
     Dates: start: 2017
  4. LYRICA [Suspect]
     Active Substance: PREGABALIN
     Indication: NEURALGIA
     Dosage: 75 MG, 3X/DAY
     Route: 048
     Dates: start: 20190111
  5. LYRICA [Suspect]
     Active Substance: PREGABALIN
     Indication: NEUROMYELITIS OPTICA SPECTRUM DISORDER
     Dosage: 50 MG, 3X/DAY
     Route: 048
  6. ELIQUIS [Concomitant]
     Active Substance: APIXABAN
     Dosage: 5 MG, 2X/DAY
  7. PLAQUENIL [Concomitant]
     Active Substance: HYDROXYCHLOROQUINE SULFATE
     Dosage: 20 MG, 1X/DAY
  8. LYRICA [Suspect]
     Active Substance: PREGABALIN
     Indication: BURNING SENSATION
     Dosage: 25 MG, 2X/DAY
     Route: 048
  9. POTASSIUM CHLORIDE. [Concomitant]
     Active Substance: POTASSIUM CHLORIDE
     Dosage: 20 MEQ, 1X/DAY
  10. RITUXAN [Concomitant]
     Active Substance: RITUXIMAB
     Dosage: UNK (4 TIMES A YEAR, 6 HOURS INFUSION)
  11. BACLOFEN. [Concomitant]
     Active Substance: BACLOFEN
     Dosage: 50 MG, DAILY (20 MG IN THE MORNING 20 IN THE EVENING AND 10 IN THE AFTERNOON)
  12. MIRAPEX [Concomitant]
     Active Substance: PRAMIPEXOLE DIHYDROCHLORIDE
     Dosage: UNK, 0.75 (2X/DAY)

REACTIONS (8)
  - Malaise [Recovering/Resolving]
  - Hernia [Recovering/Resolving]
  - Urinary tract infection [Unknown]
  - Condition aggravated [Recovered/Resolved with Sequelae]
  - Fall [Unknown]
  - Neuromyelitis optica spectrum disorder [Recovered/Resolved with Sequelae]
  - Sepsis [Unknown]
  - Body height decreased [Unknown]

NARRATIVE: CASE EVENT DATE: 201906
